FAERS Safety Report 13592705 (Version 2)
Quarter: 2017Q2

REPORT INFORMATION
  Report Type: Spontaneous
  Country: CA (occurrence: CA)
  Receive Date: 20170530
  Receipt Date: 20170621
  Transmission Date: 20170830
  Serious: Yes (Disabling)
  Sender: FDA-Public Use
  Company Number: PHHY2017CA068478

PATIENT
  Sex: Female

DRUGS (2)
  1. CLOBAZAM [Concomitant]
     Active Substance: CLOBAZAM
     Indication: PRODUCT USED FOR UNKNOWN INDICATION
     Dosage: 10 MG, QD
     Route: 065
  2. TEGRETOL [Suspect]
     Active Substance: CARBAMAZEPINE
     Indication: EPILEPSY
     Dosage: 14 ML, BID (14 ML 2X PER DAY)
     Route: 048
     Dates: start: 20161205

REACTIONS (5)
  - Disorientation [Unknown]
  - Somnolence [Recovering/Resolving]
  - Disease progression [Recovering/Resolving]
  - Seizure [Recovering/Resolving]
  - Vomiting [Recovering/Resolving]
